FAERS Safety Report 6872576-6 (Version None)
Quarter: 2010Q3

REPORT INFORMATION
  Report Type: 
  Country: None (occurrence: None)
  Receive Date: 20100723
  Receipt Date: 20081014
  Transmission Date: 20110219
  Serious: Yes (Other)
  Sender: FDA-Public Use
  Company Number: US-PFIZER INC-2008087864

PATIENT
  Sex: Male

DRUGS (2)
  1. CHANTIX [Suspect]
     Dates: start: 20080901, end: 20081007
  2. PAXIL [Concomitant]

REACTIONS (6)
  - DEPRESSED MOOD [None]
  - LOSS OF EMPLOYMENT [None]
  - SUICIDAL BEHAVIOUR [None]
  - THINKING ABNORMAL [None]
  - TREMOR [None]
  - UNEVALUABLE EVENT [None]
